FAERS Safety Report 10100342 (Version 2)
Quarter: 2014Q2

REPORT INFORMATION
  Report Type: Spontaneous
  Country: FR (occurrence: FR)
  Receive Date: 20140423
  Receipt Date: 20140513
  Transmission Date: 20141212
  Serious: Yes (Hospitalization)
  Sender: FDA-Public Use
  Company Number: FR-ASTRAZENECA-2014SE26692

PATIENT
  Age: 8831 Day
  Sex: Male

DRUGS (15)
  1. INEXIUM [Suspect]
     Indication: PREMEDICATION
     Route: 048
     Dates: start: 20140303, end: 20140303
  2. DIPRIVAN [Suspect]
     Dosage: DIPRIVAN AZ DRUG
     Route: 042
     Dates: start: 20140304, end: 20140304
  3. DIPRIVAN [Suspect]
     Dosage: GENERIC PROPOFOL LIPURO 100
     Route: 042
     Dates: start: 20140304, end: 20140304
  4. AUGMENTIN [Suspect]
     Indication: PROPHYLAXIS
     Route: 042
     Dates: start: 20140304, end: 20140304
  5. TRACRIUM [Suspect]
     Dates: start: 20140304, end: 20140304
  6. DEXAMETHASONE [Suspect]
     Dosage: 8 MG
     Dates: start: 20140304, end: 20140304
  7. DROLEPTAN [Suspect]
     Route: 042
     Dates: start: 20140304, end: 20140304
  8. EPHEDRINE [Suspect]
     Dates: start: 20140304, end: 20140304
  9. FUROSEMIDE [Suspect]
     Indication: POLYURIA
     Route: 042
     Dates: start: 20140304, end: 20140304
  10. ATARAX [Suspect]
     Indication: PREMEDICATION
     Route: 048
     Dates: start: 20140303, end: 20140303
  11. SUFENTA [Suspect]
     Route: 042
     Dates: start: 20140304, end: 20140304
  12. SEVOFLURANE BAXTER [Suspect]
     Indication: GENERAL ANAESTHESIA
     Route: 065
     Dates: start: 20140304, end: 20140304
  13. CONTRAMAL [Concomitant]
     Dates: start: 20140304, end: 20140304
  14. ACUPAN [Concomitant]
     Dates: start: 20140304, end: 20140304
  15. PARACETAMOL [Concomitant]
     Dates: start: 20140304, end: 20140304

REACTIONS (1)
  - Renal failure acute [Recovering/Resolving]
